FAERS Safety Report 24268386 (Version 1)
Quarter: 2024Q3

REPORT INFORMATION
  Report Type: Spontaneous
  Country: JP (occurrence: JP)
  Receive Date: 20240830
  Receipt Date: 20240830
  Transmission Date: 20241017
  Serious: Yes (Death, Hospitalization)
  Sender: EMD SERONO INC
  Company Number: JP-Merck Healthcare KGaA-2024046175

PATIENT
  Age: 76 Year
  Sex: Male

DRUGS (1)
  1. TEPMETKO [Suspect]
     Active Substance: TEPOTINIB HYDROCHLORIDE
     Indication: Adenosquamous cell lung cancer
     Route: 048
     Dates: start: 20231215

REACTIONS (4)
  - Death [Fatal]
  - Pleural effusion [Unknown]
  - Oedema peripheral [Unknown]
  - Hypoalbuminaemia [Unknown]
